FAERS Safety Report 11228484 (Version 1)
Quarter: 2015Q2

REPORT INFORMATION
  Report Type: Spontaneous
  Country: US (occurrence: None)
  Receive Date: 20150629
  Receipt Date: 20150629
  Transmission Date: 20150821
  Serious: No
  Sender: FDA-Public Use
  Company Number: None

PATIENT
  Sex: Female

DRUGS (6)
  1. CAPECITABINE 500MG TEVA [Suspect]
     Active Substance: CAPECITABINE
     Indication: COLON CANCER
     Dosage: 1000MG  QD FOR 14DAYS  ORAL
     Route: 048
     Dates: start: 20150605
  2. OXYCODONE [Concomitant]
     Active Substance: OXYCODONE
  3. CAPECITABINE 150MG TEVA [Suspect]
     Active Substance: CAPECITABINE
     Indication: HEPATIC CANCER
     Dosage: 300MG  QD FOR 14DAYS  ORAL
     Route: 048
     Dates: start: 20150605
  4. CAPECITABINE 150MG TEVA [Suspect]
     Active Substance: CAPECITABINE
     Indication: COLON CANCER
     Dosage: 300MG  QD FOR 14DAYS  ORAL
     Route: 048
     Dates: start: 20150605
  5. CAPECITABINE 500MG TEVA [Suspect]
     Active Substance: CAPECITABINE
     Indication: HEPATIC CANCER
     Dosage: 1000MG  QD FOR 14DAYS  ORAL
     Route: 048
     Dates: start: 20150605
  6. MORPHINE [Concomitant]
     Active Substance: MORPHINE

REACTIONS (2)
  - Stomatitis [None]
  - Neuropathy peripheral [None]
